FAERS Safety Report 15765234 (Version 3)
Quarter: 2019Q1

REPORT INFORMATION
  Report Type: Report from Study
  Country: US (occurrence: US)
  Receive Date: 20181227
  Receipt Date: 20190326
  Transmission Date: 20190417
  Serious: Yes (Hospitalization, Other)
  Sender: FDA-Public Use
  Company Number: US-SA-2018SA387444

PATIENT
  Age: 44 Year
  Sex: Male

DRUGS (1)
  1. INSULIN GLARGINE [Suspect]
     Active Substance: INSULIN GLARGINE
     Indication: DIABETES MELLITUS
     Dosage: 45 U, QD
     Route: 058
     Dates: start: 20130615

REACTIONS (8)
  - Product administration interrupted [Unknown]
  - Blood glucose increased [Recovered/Resolved]
  - Loss of consciousness [Unknown]
  - Product dose omission [Unknown]
  - Hospitalisation [Unknown]
  - Malaise [Unknown]
  - Asthenia [Recovered/Resolved]
  - Inappropriate schedule of product administration [Unknown]

NARRATIVE: CASE EVENT DATE: 201810
